FAERS Safety Report 24012718 (Version 1)
Quarter: 2024Q2

REPORT INFORMATION
  Report Type: Spontaneous
  Country: FR (occurrence: FR)
  Receive Date: 20240626
  Receipt Date: 20240626
  Transmission Date: 20240716
  Serious: Yes (Other)
  Sender: FDA-Public Use
  Company Number: FR-HALEON-2183466

PATIENT
  Age: 32 Year
  Sex: Female

DRUGS (1)
  1. TERBINAFINE [Suspect]
     Active Substance: TERBINAFINE
     Indication: Fungal infection
     Route: 065

REACTIONS (2)
  - Neutropenia [Recovering/Resolving]
  - Rash maculo-papular [Recovered/Resolved]
